FAERS Safety Report 8436952-2 (Version None)
Quarter: 2012Q2

REPORT INFORMATION
  Report Type: 
  Country: None (occurrence: None)
  Receive Date: 20120614
  Receipt Date: 20120308
  Transmission Date: 20120825
  Serious: No
  Sender: FDA-Public Use
  Company Number: US-AMGEN-USASP2012010142

PATIENT
  Sex: Female
  Weight: 70.748 kg

DRUGS (1)
  1. ARANESP [Suspect]
     Indication: ANAEMIA
     Dosage: 60 MUG, Q2WK
     Dates: start: 20090403

REACTIONS (1)
  - EXPIRED DRUG ADMINISTERED [None]
